FAERS Safety Report 5826519-4 (Version None)
Quarter: 2008Q3

REPORT INFORMATION
  Report Type: 
  Country: None (occurrence: None)
  Receive Date: 20080725
  Receipt Date: 20080721
  Transmission Date: 20090109
  Serious: Yes (Other)
  Sender: FDA-Public Use
  Company Number: 2008019026

PATIENT
  Age: 47 Year
  Sex: Female
  Weight: 75.2971 kg

DRUGS (4)
  1. BENADRYL [Suspect]
     Indication: HYPERSENSITIVITY
     Dosage: 1 TABLET 1X DAY FOR ONE DAY, ORAL
     Route: 048
     Dates: start: 20080721, end: 20080721
  2. ALL OTHER THERAPEUTIC PRODUCTS (ALL OTHER THERAPEUTIC PRODUCTS) [Concomitant]
  3. PAXIL [Concomitant]
  4. AMBIEN [Concomitant]

REACTIONS (4)
  - DIPLOPIA [None]
  - DRUG INTERACTION [None]
  - ROAD TRAFFIC ACCIDENT [None]
  - VISION BLURRED [None]
